FAERS Safety Report 19720535 (Version 5)
Quarter: 2022Q1

REPORT INFORMATION
  Report Type: Spontaneous
  Country: US (occurrence: US)
  Receive Date: 20210819
  Receipt Date: 20220121
  Transmission Date: 20220423
  Serious: Yes (Death, Hospitalization, Other)
  Sender: FDA-Public Use
  Company Number: US-BRISTOL-MYERS SQUIBB COMPANY-BMS-2021-081995

PATIENT
  Age: 69 Year
  Sex: Female

DRUGS (4)
  1. SPRYCEL [Suspect]
     Active Substance: DASATINIB
     Indication: Philadelphia positive acute lymphocytic leukaemia
     Dosage: 100 MILLIGRAM, QD
     Dates: start: 20180918
  2. SPRYCEL [Suspect]
     Active Substance: DASATINIB
     Dosage: 25 MILLIGRAM, QD
     Route: 048
     Dates: start: 20180924
  3. SPRYCEL [Suspect]
     Active Substance: DASATINIB
     Dosage: 20 MILLIGRAM, QD
     Route: 048
     Dates: start: 201811, end: 20210108
  4. SPRYCEL [Suspect]
     Active Substance: DASATINIB
     Dosage: 25 MILLIGRAM, QD
     Route: 065

REACTIONS (3)
  - Pneumonia [Fatal]
  - Neutropenic sepsis [Fatal]
  - Acute lymphocytic leukaemia recurrent [Unknown]

NARRATIVE: CASE EVENT DATE: 20210505
